FAERS Safety Report 4878900-8 (Version None)
Quarter: 2005Q4

REPORT INFORMATION
  Report Type: 
  Country: None (occurrence: None)
  Receive Date: 20051209
  Receipt Date: 20050601
  Transmission Date: 20060501
  Serious: Yes (Death)
  Sender: FDA-Public Use
  Company Number: USA-2005-0020478

PATIENT
  Sex: Male

DRUGS (3)
  1. OXYCONTIN [Suspect]
  2. SOMA [Suspect]
  3. FLEXERIL [Suspect]

REACTIONS (1)
  - MULTIPLE DRUG OVERDOSE [None]
